FAERS Safety Report 19299502 (Version 1)
Quarter: 2021Q2

REPORT INFORMATION
  Report Type: Spontaneous
  Country: US (occurrence: US)
  Receive Date: 20210524
  Receipt Date: 20210524
  Transmission Date: 20210717
  Serious: Yes (Hospitalization)
  Sender: FDA-Public Use
  Company Number: None

PATIENT
  Sex: Male

DRUGS (18)
  1. GABAPENTIN. [Concomitant]
     Active Substance: GABAPENTIN
  2. PANTOPRAZOLE [Concomitant]
     Active Substance: PANTOPRAZOLE
  3. LOSARTAN POT [Concomitant]
     Active Substance: LOSARTAN POTASSIUM
  4. FOLIC ACID. [Concomitant]
     Active Substance: FOLIC ACID
  5. TRAZODONE [Concomitant]
     Active Substance: TRAZODONE HYDROCHLORIDE
  6. HUMULIN R [Concomitant]
     Active Substance: INSULIN HUMAN
  7. DOFETILIDE. [Suspect]
     Active Substance: DOFETILIDE
     Indication: ATRIAL FIBRILLATION
     Route: 048
     Dates: start: 20180130
  8. EZETIMIBE. [Concomitant]
     Active Substance: EZETIMIBE
  9. CARVEDILOL. [Concomitant]
     Active Substance: CARVEDILOL
  10. ALBUTEROL. [Concomitant]
     Active Substance: ALBUTEROL
  11. DOXYCYCL HYC [Concomitant]
     Active Substance: DOXYCYCLINE HYCLATE
  12. BENZONATATE. [Concomitant]
     Active Substance: BENZONATATE
  13. ISOSORB MONO [Concomitant]
     Active Substance: ISOSORBIDE MONONITRATE
  14. MIRTAZAPINE. [Concomitant]
     Active Substance: MIRTAZAPINE
  15. ELIQUIS [Concomitant]
     Active Substance: APIXABAN
  16. TAMSULOSIN [Concomitant]
     Active Substance: TAMSULOSIN
  17. DUTASTERIDE. [Concomitant]
     Active Substance: DUTASTERIDE
  18. TRESIBA [Concomitant]
     Active Substance: INSULIN DEGLUDEC

REACTIONS (1)
  - Pneumonia [None]
